FAERS Safety Report 18158967 (Version 2)
Quarter: 2020Q3

REPORT INFORMATION
  Report Type: Spontaneous
  Country: TH (occurrence: TH)
  Receive Date: 20200817
  Receipt Date: 20200827
  Transmission Date: 20201103
  Serious: Yes (Other)
  Sender: FDA-Public Use
  Company Number: TH-BAYER-2020-165195

PATIENT
  Age: 61 Year
  Sex: Female

DRUGS (3)
  1. STIVARGA [Suspect]
     Active Substance: REGORAFENIB
     Dosage: 120 MG DAILY
  2. NEXAVAR [Suspect]
     Active Substance: SORAFENIB
     Dosage: UNK
     Dates: start: 20190725
  3. STIVARGA [Suspect]
     Active Substance: REGORAFENIB
     Dosage: 160 MG DAILY 3 WK ON/1 WK OFF
     Dates: start: 201911

REACTIONS (3)
  - Diarrhoea [None]
  - Palmar-plantar erythrodysaesthesia syndrome [None]
  - Hepatitis [None]
